FAERS Safety Report 6869083-3 (Version None)
Quarter: 2010Q3

REPORT INFORMATION
  Report Type: 
  Country: None (occurrence: None)
  Receive Date: 20100722
  Receipt Date: 20090401
  Transmission Date: 20110219
  Serious: Yes (Death)
  Sender: FDA-Public Use
  Company Number: US-PFIZER INC-2008051684

PATIENT
  Sex: Female
  Weight: 79.4 kg

DRUGS (25)
  1. CHANTIX [Suspect]
     Dates: start: 20070502, end: 20070626
  2. MORPHINE [Suspect]
  3. HYDROCODONE BITARTRATE [Suspect]
  4. ALBUTEROL [Concomitant]
  5. PHENYTOIN [Concomitant]
     Dosage: 100 MG, UNK
  6. TRIAMCINOLONE [Concomitant]
  7. HALOPERIDOL [Concomitant]
     Dosage: 5 MG, UNK
  8. BENAZEPRIL HYDROCHLORIDE [Concomitant]
  9. CLONIDINE [Concomitant]
     Dosage: 0.1 MG, UNK
  10. IBUPROFEN [Concomitant]
     Dosage: 800 MG, 3X/DAY
  11. COMBIVENT [Concomitant]
  12. BUPROPION HYDROCHLORIDE [Concomitant]
  13. RANITIDINE [Concomitant]
     Dosage: 150 MG, 2X/DAY
  14. LAMICTAL [Concomitant]
     Dosage: 25 MG, UNK
  15. PROVIGIL [Concomitant]
     Dosage: 200 MG, UNK
  16. CALCIUM WITH VITAMIN D [Concomitant]
     Dosage: UNK
  17. COGENTIN [Concomitant]
     Dosage: 2 MG, 3X/DAY
  18. DARVOCET [Concomitant]
     Indication: PAIN
     Dosage: UNK
  19. BACTRIM [Concomitant]
     Dosage: UNK
  20. VICODIN [Concomitant]
     Dosage: UNK
  21. ZOLPIDEM TARTRATE [Concomitant]
     Dosage: 12.5 MG, UNK
  22. CLONAZEPAM [Concomitant]
     Indication: ANXIETY
     Dosage: 1 MG, AS NEEDED
  23. HYDROXYZINE [Concomitant]
     Indication: PRURITUS
     Dosage: UNK
  24. XANAX [Concomitant]
     Dosage: 0.5 MG, UNK
     Route: 048
  25. VANCOMYCIN [Concomitant]
     Dosage: UNK
     Route: 042

REACTIONS (1)
  - COMPLETED SUICIDE [None]
